FAERS Safety Report 22020730 (Version 1)
Quarter: 2023Q1

REPORT INFORMATION
  Report Type: Spontaneous
  Country: US (occurrence: None)
  Receive Date: 20230217
  Receipt Date: 20230217
  Transmission Date: 20230418
  Serious: Yes (Other)
  Sender: FDA-Public Use
  Company Number: None

PATIENT
  Sex: Female
  Weight: 130.41 kg

DRUGS (1)
  1. OZEMPIC [Suspect]
     Active Substance: SEMAGLUTIDE
     Indication: Glucose tolerance impaired
     Dosage: FREQUENCY : WEEKLY;?
     Route: 058
     Dates: start: 20230210, end: 20230211

REACTIONS (6)
  - Incorrect dose administered [None]
  - Product supply issue [None]
  - Nausea [None]
  - Product communication issue [None]
  - Drug dose titration not performed [None]
  - Device safety feature issue [None]

NARRATIVE: CASE EVENT DATE: 20230210
